FAERS Safety Report 5822694-6 (Version None)
Quarter: 2008Q3

REPORT INFORMATION
  Report Type: 
  Country: None (occurrence: None)
  Receive Date: 20080725
  Receipt Date: 20080716
  Transmission Date: 20090109
  Serious: Yes (Death)
  Sender: FDA-Public Use
  Company Number: US-KINGPHARMUSA00001-K200800838

PATIENT

DRUGS (1)
  1. AVINZA [Suspect]
     Dosage: 600-720 MG OVER 10 HOURS
     Dates: start: 20080316

REACTIONS (1)
  - ACCIDENTAL OVERDOSE [None]
